FAERS Safety Report 10347486 (Version 2)
Quarter: 2014Q4

REPORT INFORMATION
  Report Type: Report from Study
  Country: BR (occurrence: BR)
  Receive Date: 20140729
  Receipt Date: 20141118
  Transmission Date: 20150528
  Serious: No
  Sender: FDA-Public Use
  Company Number: BR-ABBVIE-14K-020-1263245-00

PATIENT
  Age: 23 Year
  Sex: Female
  Weight: 51 kg

DRUGS (7)
  1. HUMIRA [Suspect]
     Active Substance: ADALIMUMAB
     Indication: CROHN^S DISEASE
     Dosage: INDUCTION DOSE
     Route: 058
     Dates: start: 20140213, end: 20140213
  2. HUMIRA [Suspect]
     Active Substance: ADALIMUMAB
     Route: 058
     Dates: start: 2014
  3. HUMIRA [Suspect]
     Active Substance: ADALIMUMAB
     Dosage: INDUCTION DOSE
     Route: 058
     Dates: start: 20140227, end: 20140227
  4. FOOD SUPPLEMENT (MODULEM) [Concomitant]
     Indication: SUPPLEMENTATION THERAPY
     Dosage: 2 CANS A MONTH
     Dates: start: 2006
  5. ALLESTRA [Concomitant]
     Active Substance: ETHINYL ESTRADIOL\GESTODENE
     Indication: THALASSAEMIA
     Route: 048
     Dates: start: 201207
  6. OMEPRAZOLE. [Concomitant]
     Active Substance: OMEPRAZOLE
     Indication: ABDOMINAL PAIN UPPER
     Route: 048
  7. AZATHIOPRINE. [Concomitant]
     Active Substance: AZATHIOPRINE
     Indication: CROHN^S DISEASE
     Route: 048
     Dates: start: 2006

REACTIONS (6)
  - Nausea [Unknown]
  - Wrong technique in drug usage process [Unknown]
  - Pain [Unknown]
  - Intestinal fistula [Recovered/Resolved]
  - Injury associated with device [Unknown]
  - Vomiting [Unknown]

NARRATIVE: CASE EVENT DATE: 20140718
